FAERS Safety Report 8044828-8 (Version None)
Quarter: 2012Q1

REPORT INFORMATION
  Report Type: 
  Country: None (occurrence: None)
  Receive Date: 20120113
  Receipt Date: 20120110
  Transmission Date: 20120608
  Serious: Yes (Other)
  Sender: FDA-Public Use
  Company Number: US-ROCHE-1023125

PATIENT
  Sex: Female
  Weight: 68 kg

DRUGS (7)
  1. SPIRIVA [Concomitant]
     Indication: ASTHMA
     Dosage: 1 PUFF QD SPIRIVA 180 MCG
     Route: 048
     Dates: start: 20080623
  2. NEXIUM [Concomitant]
     Indication: GASTROOESOPHAGEAL REFLUX DISEASE
     Dosage: NEXIUM 20 MG
     Route: 048
     Dates: start: 20111006
  3. XOPENEX [Concomitant]
     Dosage: XOPENEX 0.63
     Route: 048
     Dates: start: 20080623
  4. XOLAIR [Suspect]
     Indication: ASTHMA
     Route: 058
  5. ADVAIR DISKUS 100/50 [Concomitant]
     Indication: ASTHMA
     Dosage: 1 PUFF ADVAIR500/50
     Route: 048
     Dates: start: 20080623
  6. COMBIVENT [Concomitant]
     Dosage: 2-4 PUFF Q4-6HRS PRN, COMBIVENT HFA
     Route: 048
     Dates: start: 20080623
  7. XOPENEX [Concomitant]
     Indication: ASTHMA
     Dates: start: 20090112

REACTIONS (1)
  - ANAPHYLACTIC REACTION [None]
